FAERS Safety Report 7425609-2 (Version None)
Quarter: 2011Q2

REPORT INFORMATION
  Report Type: 
  Country: None (occurrence: None)
  Receive Date: 20110412
  Receipt Date: 20110405
  Transmission Date: 20111010
  Serious: Yes (Death, Hospitalization, Other)
  Sender: FDA-Public Use
  Company Number: 2008US002612

PATIENT
  Age: 78 Year
  Sex: Female
  Weight: 55 kg

DRUGS (4)
  1. BETAPACE [Concomitant]
  2. AMEVIVE [Suspect]
     Indication: PSORIASIS
     Dosage: 15 MG, WEEKLY, INTRAMUSCULAR
     Route: 030
     Dates: start: 20030909, end: 20030901
  3. LOMOTIL (DIPHENOXYLATE HYDROCHLORIDE) [Concomitant]
  4. PRAVACHOL [Concomitant]

REACTIONS (7)
  - BLADDER CANCER STAGE IV [None]
  - URETERIC DILATATION [None]
  - PYELOCALIECTASIS [None]
  - HYDRONEPHROSIS [None]
  - METASTASES TO BONE [None]
  - RENAL FAILURE ACUTE [None]
  - OBSTRUCTIVE UROPATHY [None]
